FAERS Safety Report 21876970 (Version 1)
Quarter: 2023Q1

REPORT INFORMATION
  Report Type: Spontaneous
  Country: US (occurrence: US)
  Receive Date: 20230118
  Receipt Date: 20230118
  Transmission Date: 20230417
  Serious: Yes (Hospitalization)
  Sender: FDA-Public Use
  Company Number: US-JNJFOC-20230124101

PATIENT
  Age: 24 Year
  Sex: Male

DRUGS (2)
  1. LOPERAMIDE HYDROCHLORIDE [Suspect]
     Active Substance: LOPERAMIDE HYDROCHLORIDE
     Indication: Euphoric mood
     Dosage: 200 TO 300 MG OF LOPERAMIDE EVERY OTHER DAY FOR THE PAST 6 MONTHS
     Route: 048
  2. LOPERAMIDE HYDROCHLORIDE [Suspect]
     Active Substance: LOPERAMIDE HYDROCHLORIDE
     Dosage: 200 TO 300 MG OF LOPERAMIDE EVERY OTHER DAY FOR THE PAST 6 MONTHS/ 150 TABLETS
     Route: 048

REACTIONS (20)
  - Atrioventricular block first degree [Recovering/Resolving]
  - Mental status changes [Recovering/Resolving]
  - Accelerated idioventricular rhythm [Recovering/Resolving]
  - Ventricular tachycardia [Recovering/Resolving]
  - Hypotension [Recovering/Resolving]
  - Urinary incontinence [Recovering/Resolving]
  - Sinus bradycardia [Recovering/Resolving]
  - Anxiety [Recovering/Resolving]
  - Chills [Recovering/Resolving]
  - Diarrhoea [Recovering/Resolving]
  - Piloerection [Recovering/Resolving]
  - Withdrawal syndrome [Recovering/Resolving]
  - Platelet count increased [Recovering/Resolving]
  - Blood potassium decreased [Recovering/Resolving]
  - Blood creatinine increased [Recovering/Resolving]
  - Electrocardiogram QT prolonged [Recovering/Resolving]
  - Syncope [Recovered/Resolved]
  - Electrocardiogram QRS complex prolonged [Recovering/Resolving]
  - Drug abuse [Unknown]
  - Fatigue [Recovering/Resolving]
